FAERS Safety Report 16412458 (Version 1)
Quarter: 2019Q2

REPORT INFORMATION
  Report Type: Spontaneous
  Country: PT (occurrence: PT)
  Receive Date: 20190610
  Receipt Date: 20190610
  Transmission Date: 20190711
  Serious: Yes (Other)
  Sender: FDA-Public Use
  Company Number: PT-SAMSUNG BIOEPIS-SB-2019-13829

PATIENT
  Age: 32 Year
  Sex: Female

DRUGS (4)
  1. ACETYLSALICYLIC ACID [Suspect]
     Active Substance: ASPIRIN
     Indication: BEHCET^S SYNDROME
     Dosage: UNKNOWN
     Route: 065
  2. PREDNISOLONE. [Suspect]
     Active Substance: PREDNISOLONE
     Indication: PRODUCT USED FOR UNKNOWN INDICATION
     Route: 065
  3. ENOXAPARIN SODIUM. [Suspect]
     Active Substance: ENOXAPARIN SODIUM
     Indication: BEHCET^S SYNDROME
     Dosage: UNKNOWN
     Route: 065
  4. INFLIXIMAB [Suspect]
     Active Substance: INFLIXIMAB
     Indication: BEHCET^S SYNDROME
     Dosage: 2 CYCLES, UNKNOWN
     Route: 065

REACTIONS (6)
  - Skin disorder [Recovering/Resolving]
  - Off label use [Unknown]
  - Exposure during pregnancy [Unknown]
  - Vulval disorder [Recovering/Resolving]
  - Product use in unapproved indication [Unknown]
  - Drug ineffective for unapproved indication [Unknown]
